FAERS Safety Report 4721405-5 (Version None)
Quarter: 2005Q3

REPORT INFORMATION
  Report Type: 
  Country: None (occurrence: None)
  Receive Date: 20050721
  Receipt Date: 20040811
  Transmission Date: 20060218
  Serious: No
  Sender: FDA-Public Use
  Company Number: US-BRISTOL-MYERS SQUIBB COMPANY-12667960

PATIENT
  Age: 72 Year
  Sex: Female

DRUGS (1)
  1. COUMADIN [Suspect]
     Indication: ATRIAL FIBRILLATION
     Dosage: DOSAGE: 2MG AND 2.5MG ALTERNATING DAILY
     Route: 048
     Dates: start: 20040101

REACTIONS (1)
  - INTERNATIONAL NORMALISED RATIO FLUCTUATION [None]
